FAERS Safety Report 6509033-2 (Version None)
Quarter: 2009Q4

REPORT INFORMATION
  Report Type: 
  Country: None (occurrence: None)
  Receive Date: 20091221
  Receipt Date: 20090826
  Transmission Date: 20100525
  Serious: No
  Sender: FDA-Public Use
  Company Number: US-ASTRAZENECA-2009SE10353

PATIENT
  Age: 72 Year
  Sex: Female
  Weight: 73.5 kg

DRUGS (15)
  1. CRESTOR [Suspect]
     Indication: BLOOD CHOLESTEROL INCREASED
     Route: 048
     Dates: start: 20030101, end: 20090602
  2. CRESTOR [Suspect]
     Route: 048
     Dates: start: 20090602, end: 20090826
  3. CRESTOR [Suspect]
     Route: 048
     Dates: start: 20090826
  4. ASPIRIN [Concomitant]
     Indication: ANTICOAGULANT THERAPY
  5. ADVAIR DISKUS 100/50 [Concomitant]
     Indication: CHRONIC OBSTRUCTIVE PULMONARY DISEASE
  6. ALENDRONATE SODIUM [Concomitant]
     Indication: OSTEOPOROSIS
  7. POTASSIUM CHLORIDE [Concomitant]
  8. ATENOLOL [Concomitant]
     Indication: HYPERTENSION
  9. LASIX [Concomitant]
  10. OMEPRAZOLE [Concomitant]
     Indication: DYSPEPSIA
  11. CALCIUM [Concomitant]
  12. AMIODARONE [Concomitant]
  13. FLUOXETINE [Concomitant]
     Indication: ANTIDEPRESSANT THERAPY
  14. LISINOPRIL [Concomitant]
     Indication: HYPERTENSION
  15. STOOL SOFTENER [Concomitant]
     Indication: CONSTIPATION

REACTIONS (6)
  - BLOOD CHOLESTEROL INCREASED [None]
  - BLOOD PRESSURE INCREASED [None]
  - CARDIAC FAILURE [None]
  - HEADACHE [None]
  - HIGH DENSITY LIPOPROTEIN INCREASED [None]
  - LOW DENSITY LIPOPROTEIN INCREASED [None]
